FAERS Safety Report 6865710-5 (Version None)
Quarter: 2010Q3

REPORT INFORMATION
  Report Type: 
  Country: None (occurrence: None)
  Receive Date: 20100721
  Receipt Date: 20080430
  Transmission Date: 20110219
  Serious: No
  Sender: FDA-Public Use
  Company Number: US-PFIZER INC-2008038649

PATIENT
  Sex: Female
  Weight: 77.272 kg

DRUGS (9)
  1. CHANTIX [Suspect]
     Indication: SMOKING CESSATION THERAPY
     Route: 048
     Dates: start: 20080419
  2. ZOCOR [Concomitant]
  3. INDERAL [Concomitant]
  4. ESTRADIOL [Concomitant]
  5. DYAZIDE [Concomitant]
  6. POTASSIUM CHLORIDE [Concomitant]
  7. MULTI-VITAMINS [Concomitant]
  8. CALCIUM [Concomitant]
  9. ASPIRIN [Concomitant]

REACTIONS (3)
  - ABDOMINAL DISTENSION [None]
  - ABDOMINAL PAIN UPPER [None]
  - NAUSEA [None]
